FAERS Safety Report 25382704 (Version 2)
Quarter: 2025Q2

REPORT INFORMATION
  Report Type: Spontaneous
  Country: PT (occurrence: PT)
  Receive Date: 20250602
  Receipt Date: 20250611
  Transmission Date: 20250716
  Serious: Yes (Hospitalization)
  Sender: BOEHRINGER INGELHEIM
  Company Number: PT-BoehringerIngelheim-2025-BI-073009

PATIENT
  Age: 84 Year
  Sex: Male

DRUGS (1)
  1. DABIGATRAN [Suspect]
     Active Substance: DABIGATRAN
     Indication: Atrial fibrillation

REACTIONS (1)
  - Organising pneumonia [Recovering/Resolving]
